FAERS Safety Report 9253154 (Version 2)
Quarter: 2013Q2

REPORT INFORMATION
  Report Type: Report from Study
  Country: BR (occurrence: BR)
  Receive Date: 20130424
  Receipt Date: 20130514
  Transmission Date: 20140414
  Serious: Yes (Other)
  Sender: FDA-Public Use
  Company Number: BR-ABBOTT-13P-020-1078587-00

PATIENT
  Sex: Female
  Weight: 72 kg

DRUGS (4)
  1. HUMIRA [Suspect]
     Indication: ANKYLOSING SPONDYLITIS
     Route: 058
     Dates: start: 20130305
  2. NIMESULIDE [Concomitant]
     Indication: PAIN
     Route: 048
     Dates: start: 2005
  3. OMEPRAZOLE [Concomitant]
     Indication: GASTRITIS
     Route: 048
     Dates: start: 2009
  4. UNKNOWN CONTRACEPTIVE [Concomitant]
     Indication: ENDOMETRIOSIS
     Route: 048

REACTIONS (2)
  - Endometriosis [Unknown]
  - Haemorrhage [Unknown]
